FAERS Safety Report 24767490 (Version 1)
Quarter: 2024Q4

REPORT INFORMATION
  Report Type: Spontaneous
  Country: MX (occurrence: None)
  Receive Date: 20241221
  Receipt Date: 20241221
  Transmission Date: 20250115
  Serious: Yes (Disabling, Other)
  Sender: Public
  Company Number: None

PATIENT
  Age: 26 Year
  Sex: Male

DRUGS (1)
  1. ESCITALOPRAM [Suspect]
     Active Substance: ESCITALOPRAM OXALATE
     Indication: Anxiety

REACTIONS (15)
  - Feeling abnormal [None]
  - Emotional disorder [None]
  - Cognitive disorder [None]
  - Anhedonia [None]
  - Libido decreased [None]
  - Therapy interrupted [None]
  - Urethral pain [None]
  - Panic reaction [None]
  - Serotonin syndrome [None]
  - Hypoaesthesia [None]
  - Paraesthesia [None]
  - Memory impairment [None]
  - Fatigue [None]
  - Muscular weakness [None]
  - Testicular pain [None]

NARRATIVE: CASE EVENT DATE: 20240326
